FAERS Safety Report 5411786-1 (Version None)
Quarter: 2007Q3

REPORT INFORMATION
  Report Type: 
  Country: None (occurrence: None)
  Receive Date: 20070713
  Receipt Date: 20070319
  Transmission Date: 20080115
  Serious: No
  Sender: FDA-Public Use
  Company Number: 2007SP000967

PATIENT
  Age: 47 Year
  Sex: Female
  Weight: 70.3075 kg

DRUGS (5)
  1. LUNESTA [Suspect]
     Indication: INSOMNIA
     Dosage: 2 MG;HS;ORAL
     Route: 048
     Dates: start: 20070312, end: 20070315
  2. LOVASTATIN [Concomitant]
  3. ZOLOFT [Concomitant]
  4. SYNTHROID [Concomitant]
  5. OMEPRAZOLE [Concomitant]

REACTIONS (8)
  - ABNORMAL DREAMS [None]
  - CRYING [None]
  - DEPRESSED MOOD [None]
  - FATIGUE [None]
  - FEELING JITTERY [None]
  - INSOMNIA [None]
  - SUICIDAL IDEATION [None]
  - THINKING ABNORMAL [None]
